FAERS Safety Report 18276793 (Version 1)
Quarter: 2020Q3

REPORT INFORMATION
  Report Type: Spontaneous
  Country: US (occurrence: US)
  Receive Date: 20200916
  Receipt Date: 20200916
  Transmission Date: 20201103
  Serious: No
  Sender: FDA-Public Use
  Company Number: None

PATIENT
  Age: 74 Year
  Sex: Male
  Weight: 87.8 kg

DRUGS (13)
  1. ENOXAPARIN [Concomitant]
     Active Substance: ENOXAPARIN
     Dates: start: 20200907
  2. METOPROLOL. [Concomitant]
     Active Substance: METOPROLOL
     Dates: start: 20200908, end: 20200908
  3. ACETAMINOPHEN. [Concomitant]
     Active Substance: ACETAMINOPHEN
     Dates: start: 20200908
  4. POTASSIUM CHLORIDE. [Concomitant]
     Active Substance: POTASSIUM CHLORIDE
     Dates: start: 20200908
  5. REMDESIVIR EUA [Suspect]
     Active Substance: REMDESIVIR
     Indication: COVID-19
     Route: 042
     Dates: start: 20200907, end: 20200911
  6. PREDNISONE. [Concomitant]
     Active Substance: PREDNISONE
     Dates: start: 20200911
  7. FLUTICASONE. [Concomitant]
     Active Substance: FLUTICASONE
     Dates: start: 20200907
  8. LOSARTAN. [Concomitant]
     Active Substance: LOSARTAN
     Dates: start: 20200909
  9. DEXAMATHASONE [Concomitant]
     Dates: start: 20200907, end: 20200910
  10. ASPIRIN. [Concomitant]
     Active Substance: ASPIRIN
     Dates: start: 20200908
  11. BENZONATATE. [Concomitant]
     Active Substance: BENZONATATE
     Dates: start: 20200908
  12. MONTELUKAST [Concomitant]
     Active Substance: MONTELUKAST SODIUM
  13. LEVOTHYROXINE. [Concomitant]
     Active Substance: LEVOTHYROXINE

REACTIONS (3)
  - Liver function test increased [None]
  - Incorrect dose administered [None]
  - Haemoptysis [None]

NARRATIVE: CASE EVENT DATE: 20200911
